FAERS Safety Report 19413730 (Version 1)
Quarter: 2021Q2

REPORT INFORMATION
  Report Type: Spontaneous
  Country: US (occurrence: US)
  Receive Date: 20210615
  Receipt Date: 20210615
  Transmission Date: 20210717
  Serious: No
  Sender: FDA-Public Use
  Company Number: US-AUROBINDO-AUR-APL-2020-021997

PATIENT
  Sex: Female

DRUGS (2)
  1. ESOMEPRAZOLE MAGNESIUM DELAYED?RELEASE CAPSULES 20 MG [Suspect]
     Active Substance: ESOMEPRAZOLE MAGNESIUM
     Indication: ERUCTATION
  2. ESOMEPRAZOLE MAGNESIUM DELAYED?RELEASE CAPSULES 20 MG [Suspect]
     Active Substance: ESOMEPRAZOLE MAGNESIUM
     Indication: FLATULENCE
     Dosage: 1 DOSAGE FORM, ONCE A DAY BEFORE BREAKFAST
     Route: 065
     Dates: start: 20200228, end: 20200331

REACTIONS (2)
  - Oral discomfort [Recovered/Resolved]
  - Hypersensitivity [Recovered/Resolved]
